FAERS Safety Report 20320587 (Version 4)
Quarter: 2022Q4

REPORT INFORMATION
  Report Type: Spontaneous
  Country: FR (occurrence: FR)
  Receive Date: 20220111
  Receipt Date: 20221021
  Transmission Date: 20230112
  Serious: Yes (Hospitalization, Other)
  Sender: FDA-Public Use
  Company Number: FR-Accord-249402

PATIENT
  Age: 69 Year
  Sex: Male

DRUGS (3)
  1. MYCOPHENOLATE MOFETIL [Interacting]
     Active Substance: MYCOPHENOLATE MOFETIL
     Indication: Immunosuppressant drug therapy
     Dosage: 250 MG TWICE DAILY
  2. TACROLIMUS [Interacting]
     Active Substance: TACROLIMUS
     Indication: Immunosuppressant drug therapy
     Dosage: 2,5 MG TWICE DAILY
  3. ISAVUCONAZOLE [Interacting]
     Active Substance: ISAVUCONAZOLE
     Dosage: 100 MG/DAY 200 MG TID
     Route: 048

REACTIONS (6)
  - Acute kidney injury [Recovered/Resolved]
  - Alternaria infection [Recovered/Resolved]
  - Overdose [Unknown]
  - Drug interaction [Unknown]
  - Tremor [Recovered/Resolved]
  - Chronic kidney disease [Unknown]
